FAERS Safety Report 10016397 (Version 1)
Quarter: 2014Q1

REPORT INFORMATION
  Report Type: Spontaneous
  Country: IR (occurrence: IR)
  Receive Date: 20140317
  Receipt Date: 20140317
  Transmission Date: 20141002
  Serious: Yes (Hospitalization)
  Sender: FDA-Public Use
  Company Number: IR-MYLANLABS-2014S1005189

PATIENT
  Age: 26 Year
  Sex: Female

DRUGS (2)
  1. METHADONE [Suspect]
     Indication: ACCIDENTAL OVERDOSE
     Dosage: 5 MG/ML METHADONE MIXTURE OF D, S ISOMER
     Route: 048
  2. METHADONE [Suspect]
     Indication: OFF LABEL USE
     Dosage: 5 MG/ML METHADONE MIXTURE OF D, S ISOMER
     Route: 048

REACTIONS (5)
  - Accidental overdose [Recovered/Resolved]
  - Toxicity to various agents [Recovered/Resolved]
  - Acute respiratory distress syndrome [Recovered/Resolved]
  - Hyperhidrosis [Unknown]
  - Agitation [Unknown]
